FAERS Safety Report 8150967-3 (Version None)
Quarter: 2012Q1

REPORT INFORMATION
  Report Type: 
  Country: None (occurrence: None)
  Receive Date: 20120220
  Receipt Date: 20120213
  Transmission Date: 20120608
  Serious: Yes (Hospitalization, Other)
  Sender: FDA-Public Use
  Company Number: US-AMGEN-USASP2012009480

PATIENT
  Age: 65 Year
  Sex: Female

DRUGS (2)
  1. EPOGEN [Suspect]
     Indication: DIALYSIS
  2. EPOGEN [Suspect]
     Indication: RENAL FAILURE CHRONIC
     Dosage: 20000 IU, 3 TIMES/WK

REACTIONS (2)
  - GASTROINTESTINAL HAEMORRHAGE [None]
  - DRUG INEFFECTIVE [None]
